FAERS Safety Report 24079906 (Version 1)
Quarter: 2024Q3

REPORT INFORMATION
  Report Type: Spontaneous
  Country: US (occurrence: US)
  Receive Date: 20240711
  Receipt Date: 20240711
  Transmission Date: 20241016
  Serious: No
  Sender: GUERBET
  Company Number: US-GUERBET / LLC-US-20240067

PATIENT
  Age: 55 Year

DRUGS (1)
  1. DOTAREM [Suspect]
     Active Substance: GADOTERATE MEGLUMINE
     Indication: Magnetic resonance imaging pancreas

REACTIONS (1)
  - Sneezing [Unknown]
